FAERS Safety Report 14032854 (Version 3)
Quarter: 2017Q4

REPORT INFORMATION
  Report Type: Spontaneous
  Country: ES (occurrence: ES)
  Receive Date: 20171002
  Receipt Date: 20171024
  Transmission Date: 20180321
  Serious: Yes (Other)
  Sender: FDA-Public Use
  Company Number: ES-PFIZER INC-2017416542

PATIENT
  Age: 72 Year
  Sex: Male

DRUGS (13)
  1. AMLODIPINE BESILATE [Interacting]
     Active Substance: AMLODIPINE BESYLATE
     Dosage: 5 MG (1 TABLET) IN THE AFTERNOON
     Route: 048
  2. AMLODIPINE BESILATE [Suspect]
     Active Substance: AMLODIPINE BESYLATE
     Indication: HYPERTENSION
     Dosage: 5 MG, 1X/DAY (IN THE EVENING) (0-0-1-0)
     Route: 048
  3. FENOFIBRATE W/SIMVASTATIN [Interacting]
     Active Substance: FENOFIBRATE\SIMVASTATIN
     Indication: DYSLIPIDAEMIA
     Dosage: 145 MG + 20 MG, 1 AT ALTERNATE DAY
     Route: 048
  4. CLOPIDOGREL PLUS ASS [Interacting]
     Active Substance: ASPIRIN\CLOPIDOGREL BISULFATE
     Indication: PERIPHERAL ARTERIAL OCCLUSIVE DISEASE
  5. FOLIC ACID. [Suspect]
     Active Substance: FOLIC ACID
     Indication: ESSENTIAL THROMBOCYTHAEMIA
     Dosage: 5 MG, 2X/WEEK
     Route: 048
     Dates: start: 2015
  6. PARACETAMOL [Concomitant]
     Active Substance: ACETAMINOPHEN
     Indication: HEADACHE
     Dosage: 500 MG, 2X/DAY (IN THE MORNING AND IN THE NIGHT)
     Route: 048
  7. ANAGRELIDE. [Suspect]
     Active Substance: ANAGRELIDE HYDROCHLORIDE
     Indication: ESSENTIAL THROMBOCYTHAEMIA
     Dosage: 0.5 MG, ALTERNATELY 1 OR 2 TABLETS PER DAY (1-0-1-0)
     Route: 048
     Dates: start: 2015
  8. MILK OF MAGNESIA [Interacting]
     Active Substance: MAGNESIUM HYDROXIDE
     Indication: CONSTIPATION
     Dosage: 1 ALMOST EVERY NIGHT
     Route: 048
  9. CLOPIDOGREL PLUS ASS [Interacting]
     Active Substance: ASPIRIN\CLOPIDOGREL BISULFATE
     Indication: CORONARY ARTERY DISEASE
     Dosage: 100 MG + 75 MG, 1X/DAY (0-1-0-0)
     Route: 048
  10. VALSARTAN AND HYDROCHLOROTHIAZIDE [Interacting]
     Active Substance: HYDROCHLOROTHIAZIDE\VALSARTAN
     Indication: HYPERTENSION
     Dosage: 160 MG + 12.5 MG. 1X/DAY (IN THE MORNING) (1-0-0-0)
     Route: 048
  11. HYDROXYCARBAMIDE [Suspect]
     Active Substance: HYDROXYUREA
     Indication: ESSENTIAL THROMBOCYTHAEMIA
     Dosage: 500 MG, ALTERNATE DAY
     Route: 048
     Dates: start: 2015
  12. CLOPIDOGREL PLUS ASS [Interacting]
     Active Substance: ASPIRIN\CLOPIDOGREL BISULFATE
     Indication: CEREBROVASCULAR ACCIDENT
  13. VITAMIN B12 [Concomitant]
     Active Substance: CYANOCOBALAMIN
     Dosage: 1 DF, MONTHLY
     Route: 030

REACTIONS (5)
  - Cerebrovascular accident [Unknown]
  - Drug interaction [Unknown]
  - Drug ineffective [Unknown]
  - Constipation [Recovering/Resolving]
  - Headache [Not Recovered/Not Resolved]
